FAERS Safety Report 8078085-3 (Version None)
Quarter: 2012Q1

REPORT INFORMATION
  Report Type: 
  Country: None (occurrence: None)
  Receive Date: 20120127
  Receipt Date: 20110107
  Transmission Date: 20120608
  Serious: No
  Sender: FDA-Public Use
  Company Number: US-ABBOTT-11P-163-0696154-00

PATIENT
  Age: 66 Year
  Sex: Female

DRUGS (10)
  1. HYDROCHLOROTHIAZIDE [Concomitant]
     Indication: BLOOD PRESSURE
  2. AMLODIPINE [Concomitant]
     Indication: BLOOD PRESSURE
  3. LEUCOVORIN CALCIUM [Concomitant]
     Indication: VITAMIN SUPPLEMENTATION
  4. PREDNISONE [Concomitant]
     Indication: RHEUMATOID ARTHRITIS
  5. HUMIRA [Suspect]
     Indication: RHEUMATOID ARTHRITIS
     Dates: start: 20070101
  6. LISINOPRIL [Concomitant]
     Indication: BLOOD PRESSURE
  7. ZOCOR [Concomitant]
     Indication: BLOOD CHOLESTEROL INCREASED
  8. FOSAMAX [Concomitant]
     Indication: OSTEOPOROSIS
  9. VICODIN [Concomitant]
     Indication: PAIN
  10. METHOTREXATE [Concomitant]
     Indication: RHEUMATOID ARTHRITIS

REACTIONS (3)
  - COUGH [None]
  - OROPHARYNGEAL PAIN [None]
  - NASOPHARYNGITIS [None]
